FAERS Safety Report 9448536 (Version 2)
Quarter: 2013Q3

REPORT INFORMATION
  Report Type: Spontaneous
  Country: US (occurrence: US)
  Receive Date: 20130808
  Receipt Date: 20130910
  Transmission Date: 20140515
  Serious: Yes (Other)
  Sender: FDA-Public Use
  Company Number: US-ELI_LILLY_AND_COMPANY-US201308000733

PATIENT
  Sex: Female

DRUGS (2)
  1. FORTEO [Suspect]
     Dosage: UNK UNK, UNKNOWN
     Dates: start: 20130515, end: 201306
  2. FORTEO [Suspect]
     Dosage: UNK UNK, UNKNOWN

REACTIONS (4)
  - Hypotension [Unknown]
  - Unresponsive to stimuli [Unknown]
  - Pain in extremity [Unknown]
  - Musculoskeletal pain [Unknown]
